FAERS Safety Report 5524388-3 (Version None)
Quarter: 2007Q4

REPORT INFORMATION
  Report Type: 
  Country: None (occurrence: None)
  Receive Date: 20071121
  Receipt Date: 20071112
  Transmission Date: 20080405
  Serious: Yes (Other)
  Sender: FDA-Public Use
  Company Number: US-PFIZER INC-2007096624

PATIENT
  Sex: Male
  Weight: 93 kg

DRUGS (3)
  1. CHANTIX [Suspect]
     Indication: SMOKING CESSATION THERAPY
  2. BUPROPION HCL [Concomitant]
  3. ANTIBIOTICS [Concomitant]

REACTIONS (2)
  - HEART RATE INCREASED [None]
  - TONGUE DISORDER [None]
